FAERS Safety Report 4817248-4 (Version None)
Quarter: 2005Q3

REPORT INFORMATION
  Report Type: 
  Country: None (occurrence: None)
  Receive Date: 20050929
  Receipt Date: 20050603
  Transmission Date: 20060218
  Serious: No
  Sender: FDA-Public Use
  Company Number: 05P-163-0302276-00

PATIENT
  Age: 48 Year
  Sex: Female
  Weight: 83.9154 kg

DRUGS (8)
  1. HUMIRA [Suspect]
     Indication: RHEUMATOID ARTHRITIS
     Dosage: 40 MG, 1 IN 2 WK, SUBCUTANEOUS
     Route: 058
     Dates: start: 20050328
  2. CLONAZEPAM [Concomitant]
  3. BUPROPION HYDROCHLORIDE [Concomitant]
  4. CYMVALTA [Concomitant]
  5. PANTOPRAZOLE [Concomitant]
  6. DIAZEPAM [Concomitant]
  7. SEROQUEL [Concomitant]
  8. HYDROCODONE [Concomitant]

REACTIONS (5)
  - CYSTITIS [None]
  - FAECES DISCOLOURED [None]
  - FEELING HOT [None]
  - HERPES SIMPLEX [None]
  - SUICIDAL IDEATION [None]
